FAERS Safety Report 17943142 (Version 5)
Quarter: 2024Q4

REPORT INFORMATION
  Report Type: Spontaneous
  Country: US (occurrence: US)
  Receive Date: 20200625
  Receipt Date: 20241022
  Transmission Date: 20250114
  Serious: Yes (Other)
  Sender: GILEAD
  Company Number: US-GILEAD-2020-0474690

PATIENT
  Age: 51 Year
  Sex: Male
  Weight: 64.41 kg

DRUGS (59)
  1. VIREAD [Suspect]
     Active Substance: TENOFOVIR DISOPROXIL FUMARATE
     Indication: HIV infection
     Dosage: UNK
     Route: 048
     Dates: start: 2007, end: 2019
  2. ATRIPLA [Suspect]
     Active Substance: EFAVIRENZ\EMTRICITABINE\TENOFOVIR DISOPROXIL FUMARATE
     Indication: HIV infection
     Dosage: UNK
     Route: 048
     Dates: start: 2007, end: 2012
  3. ATRIPLA [Suspect]
     Active Substance: EFAVIRENZ\EMTRICITABINE\TENOFOVIR DISOPROXIL FUMARATE
     Dosage: UNK
     Route: 048
     Dates: start: 2006, end: 201108
  4. ATRIPLA [Suspect]
     Active Substance: EFAVIRENZ\EMTRICITABINE\TENOFOVIR DISOPROXIL FUMARATE
     Dosage: UNK
     Route: 048
     Dates: start: 2008
  5. COMBIVIR [Concomitant]
     Active Substance: LAMIVUDINE\ZIDOVUDINE
  6. CRIXIVAN [Concomitant]
     Active Substance: INDINAVIR SULFATE
  7. EPIVIR [Concomitant]
     Active Substance: LAMIVUDINE
  8. EPZICOM [Concomitant]
     Active Substance: ABACAVIR SULFATE\LAMIVUDINE
  9. NORVIR [Concomitant]
     Active Substance: RITONAVIR
  10. RETROVIR [Concomitant]
     Active Substance: ZIDOVUDINE
  11. PREZCOBIX [Concomitant]
     Active Substance: COBICISTAT\DARUNAVIR ETHANOLATE
  12. TIVICAY [Concomitant]
     Active Substance: DOLUTEGRAVIR SODIUM
  13. TRIUMEQ [Concomitant]
     Active Substance: ABACAVIR SULFATE\DOLUTEGRAVIR SODIUM\LAMIVUDINE
  14. VIDEX EC [Concomitant]
     Active Substance: DIDANOSINE
  15. ZIAGEN [Concomitant]
     Active Substance: ABACAVIR SULFATE
  16. METHIMAZOLE [Concomitant]
     Active Substance: METHIMAZOLE
  17. SUSTIVA [Concomitant]
     Active Substance: EFAVIRENZ
  18. DIAZEPAM [Concomitant]
     Active Substance: DIAZEPAM
  19. SERTRALINE HYDROCHLORIDE [Concomitant]
     Active Substance: SERTRALINE HYDROCHLORIDE
  20. BENZONATATE [Concomitant]
     Active Substance: BENZONATATE
  21. LIDOCAINE [Concomitant]
     Active Substance: LIDOCAINE
  22. AZITHROMYCIN [Concomitant]
     Active Substance: AZITHROMYCIN
  23. FLUTICASONE [Concomitant]
     Active Substance: FLUTICASONE
  24. ATROVENT HFA [Concomitant]
     Active Substance: IPRATROPIUM BROMIDE
  25. AMOXICILLIN [Concomitant]
     Active Substance: AMOXICILLIN
  26. METRONIDAZOLE [Concomitant]
     Active Substance: METRONIDAZOLE
  27. CHANTIX [Concomitant]
     Active Substance: VARENICLINE TARTRATE
  28. ACETAMINOPHEN AND CODEINE [Concomitant]
     Active Substance: ACETAMINOPHEN\CODEINE PHOSPHATE
  29. ACETAMINOPHEN\OXYCODONE HYDROCHLORIDE [Concomitant]
     Active Substance: ACETAMINOPHEN\OXYCODONE HYDROCHLORIDE
  30. CIPROFLOXACIN HYDROCHLORIDE [Concomitant]
     Active Substance: CIPROFLOXACIN HYDROCHLORIDE
  31. PENICILLIN G [Concomitant]
     Active Substance: PENICILLIN G
  32. ANDROGEL [Concomitant]
     Active Substance: TESTOSTERONE
  33. SULFAMETHOXAZOLE AND TRIMETHOPRIM [Concomitant]
     Active Substance: SULFAMETHOXAZOLE\TRIMETHOPRIM
  34. PROVENTIL HFA [Concomitant]
     Active Substance: ALBUTEROL SULFATE
  35. HYDROCODONE BITARTRATE AND ACETAMINOPHEN [Concomitant]
     Active Substance: ACETAMINOPHEN\HYDROCODONE BITARTRATE
  36. MEGESTROL [Concomitant]
     Active Substance: MEGESTROL
  37. PROMETHAZINE [Concomitant]
     Active Substance: PROMETHAZINE HYDROCHLORIDE
  38. LOSARTAN POTASSIUM [Concomitant]
     Active Substance: LOSARTAN POTASSIUM
  39. TIZANIDINE HYDROCHLORIDE [Concomitant]
     Active Substance: TIZANIDINE HYDROCHLORIDE
  40. ABACAVIR\LAMIVUDINE [Concomitant]
     Active Substance: ABACAVIR\LAMIVUDINE
  41. OXYCODONE HYDROCHLORIDE [Concomitant]
     Active Substance: OXYCODONE HYDROCHLORIDE
  42. METHYLPREDNISOLONE [Concomitant]
     Active Substance: METHYLPREDNISOLONE
  43. EFAVIRENZ [Concomitant]
     Active Substance: EFAVIRENZ
  44. DOXYCYCLINE [Concomitant]
     Active Substance: DOXYCYCLINE
  45. GABAPENTIN [Concomitant]
     Active Substance: GABAPENTIN
  46. ASPIRIN [Concomitant]
     Active Substance: ASPIRIN
  47. VALIUM [Concomitant]
     Active Substance: DIAZEPAM
  48. IPRATROPIUM BROMIDE [Concomitant]
     Active Substance: IPRATROPIUM BROMIDE
  49. ALLEGRA ALLERGY [Concomitant]
     Active Substance: FEXOFENADINE HYDROCHLORIDE
  50. FLONASE [Concomitant]
     Active Substance: FLUTICASONE PROPIONATE
  51. AUGMENTIN [Concomitant]
     Active Substance: AMOXICILLIN\CLAVULANATE POTASSIUM
  52. BACTRIM [Concomitant]
     Active Substance: SULFAMETHOXAZOLE\TRIMETHOPRIM
  53. FLUCONAZOLE [Concomitant]
     Active Substance: FLUCONAZOLE
  54. FLAGYL [Concomitant]
     Active Substance: METRONIDAZOLE\METRONIDAZOLE HYDROCHLORIDE
  55. ALLOPURINOL [Concomitant]
     Active Substance: ALLOPURINOL
  56. DEXAMETHASONE [Concomitant]
     Active Substance: DEXAMETHASONE
  57. VITAMIN B COMPLEX [Concomitant]
     Active Substance: CYANOCOBALAMIN\DEXPANTHENOL\NIACINAMIDE\PYRIDOXINE HYDROCHLORIDE\RIBOFLAVIN 5^-PHOSPHATE SODIUM\THIA
  58. DIETARY SUPPLEMENT\HERBALS\MILK THISTLE [Concomitant]
     Active Substance: MILK THISTLE
  59. ALFALFA [MEDICAGO SATIVA] [Concomitant]

REACTIONS (13)
  - Renal injury [Unknown]
  - Skeletal injury [Unknown]
  - Osteopenia [Not Recovered/Not Resolved]
  - Multiple fractures [Unknown]
  - Osteonecrosis [Unknown]
  - Bone loss [Unknown]
  - Bone density decreased [Unknown]
  - Spinal compression fracture [Not Recovered/Not Resolved]
  - Bone demineralisation [Unknown]
  - Emotional distress [Not Recovered/Not Resolved]
  - Anhedonia [Not Recovered/Not Resolved]
  - Anxiety [Not Recovered/Not Resolved]
  - Pain [Not Recovered/Not Resolved]

NARRATIVE: CASE EVENT DATE: 20111229
